FAERS Safety Report 17535062 (Version 3)
Quarter: 2021Q4

REPORT INFORMATION
  Report Type: Report from Study
  Country: DE (occurrence: DE)
  Receive Date: 20200313
  Receipt Date: 20211108
  Transmission Date: 20220303
  Serious: No
  Sender: FDA-Public Use
  Company Number: DE-SHIRE-DE202008642

PATIENT
  Age: 35 Year
  Sex: Male
  Weight: 140 kg

DRUGS (8)
  1. CALCITRIOL [Suspect]
     Active Substance: CALCITRIOL
     Indication: Hypoparathyroidism
     Dosage: 0.5 MICROGRAM
     Route: 065
     Dates: end: 20200304
  2. CALCIUM [Suspect]
     Active Substance: CALCIUM
     Indication: Hypoparathyroidism
     Dosage: 0.5 GRAM
     Route: 048
     Dates: end: 20200304
  3. PARATHYROID HORMONE [Suspect]
     Active Substance: PARATHYROID HORMONE
     Indication: Hypoparathyroidism
     Dosage: 100 MICROGRAM, DIVIDED INTO 2X DAILY
     Route: 058
     Dates: start: 20200107
  4. LEVOTHYROXINE SODIUM [Concomitant]
     Active Substance: LEVOTHYROXINE SODIUM
     Indication: Thyroidectomy
     Dosage: 150 MICROGRAM
  5. CANDESARTAN [Concomitant]
     Active Substance: CANDESARTAN
     Indication: Hypertension
     Dosage: 8 MILLIGRAM
  6. MAGNESIUM [Concomitant]
     Active Substance: MAGNESIUM
     Indication: Hypoparathyroidism
     Dosage: 8 MILLIGRAM
  7. AMLODIPINE [Concomitant]
     Active Substance: AMLODIPINE BESYLATE
     Indication: Hypertension
     Dosage: 5 MILLIGRAM
     Route: 065
  8. AMLODIPINE [Concomitant]
     Active Substance: AMLODIPINE BESYLATE
     Indication: Hypertonia

REACTIONS (2)
  - Off label use [Unknown]
  - Hypercalcaemia [Recovering/Resolving]

NARRATIVE: CASE EVENT DATE: 20200304
